FAERS Safety Report 5240868-2 (Version None)
Quarter: 2007Q1

REPORT INFORMATION
  Report Type: 
  Country: None (occurrence: None)
  Receive Date: 20070219
  Receipt Date: 20070209
  Transmission Date: 20070707
  Serious: Yes (Life-Threatening, Hospitalization, Other)
  Sender: FDA-Public Use
  Company Number: GB-ELI_LILLY_AND_COMPANY-GB200701005175

PATIENT
  Age: 47 Year
  Sex: Female
  Weight: 62 kg

DRUGS (11)
  1. ZYPREXA [Suspect]
     Indication: PSYCHOTIC DISORDER
     Dosage: 15 MG, EACH EVENING
     Dates: end: 20070101
  2. ZYPREXA [Suspect]
     Dosage: 7.5 MG, EACH EVENING
     Dates: start: 20070101, end: 20070101
  3. ZYPREXA [Suspect]
     Dosage: 2.5 MG, EACH EVENING
     Route: 048
     Dates: start: 20070111, end: 20070124
  4. SERTRALINE [Concomitant]
     Dosage: 50MG, EACH MORNING
     Route: 048
  5. LITHIUM CARBONATE [Concomitant]
     Dates: end: 20070101
  6. PARACETAMOL [Concomitant]
  7. SENNA [Concomitant]
     Dosage: 2 TABLETS, EACH EVENING
     Route: 048
  8. LACTULOSE [Concomitant]
     Dosage: 10 ML, 2/D
     Route: 048
  9. LACTULOSE [Concomitant]
     Dosage: 10 ML, 2/D
     Route: 048
  10. CEFACLOR [Concomitant]
     Dosage: 375 MG, 2/D
     Route: 048
  11. PROCYCLIDINE HYDROCHLORIDE 2MG TAB [Concomitant]
     Dosage: 5 MG, EACH MORNING
     Route: 048

REACTIONS (20)
  - ABNORMAL BEHAVIOUR [None]
  - AGITATION [None]
  - BLOOD OSMOLARITY DECREASED [None]
  - BLOOD PRESSURE INCREASED [None]
  - COMMUNICATION DISORDER [None]
  - DELIRIUM [None]
  - DEPRESSION [None]
  - ESCHERICHIA INFECTION [None]
  - FLUID IMBALANCE [None]
  - HYPERTHERMIA [None]
  - LIVER DISORDER [None]
  - MUSCULOSKELETAL STIFFNESS [None]
  - NEUROLEPTIC MALIGNANT SYNDROME [None]
  - OVERDOSE [None]
  - POSTURING [None]
  - RENAL IMPAIRMENT [None]
  - TACHYCARDIA [None]
  - TREMOR [None]
  - TRISMUS [None]
  - WHITE BLOOD CELL COUNT INCREASED [None]
